FAERS Safety Report 4589182-9 (Version None)
Quarter: 2005Q1

REPORT INFORMATION
  Report Type: 
  Country: None (occurrence: None)
  Receive Date: 20050215
  Receipt Date: 20050215
  Transmission Date: 20050727
  Serious: Yes (Other)
  Sender: FDA-Public Use
  Company Number: None

PATIENT
  Sex: Female
  Weight: 32 kg

DRUGS (2)
  1. DEPAKENE [Suspect]
     Indication: CONVULSION
     Dosage: 400 MG Q8H  ORAL
     Route: 048
  2. MERREM [Suspect]
     Indication: PNEUMONIA
     Dosage: 500 MG Q12H  INTRAVENOUS
     Route: 042
     Dates: start: 20050123, end: 20050125

REACTIONS (1)
  - DRUG LEVEL DECREASED [None]
